FAERS Safety Report 20819398 (Version 2)
Quarter: 2022Q2

REPORT INFORMATION
  Report Type: Report from Study
  Country: CA (occurrence: CA)
  Receive Date: 20220512
  Receipt Date: 20220628
  Transmission Date: 20220721
  Serious: Yes (Other)
  Sender: FDA-Public Use
  Company Number: CA-JNJFOC-20210817704

PATIENT
  Age: 70 Year
  Sex: Male

DRUGS (1)
  1. REMICADE [Suspect]
     Active Substance: INFLIXIMAB
     Indication: Colitis ulcerative
     Dosage: THE PATIENT ADMINISTERED 62ND INFUSION OF 600 MG ON 27-AUG-2021. ON 09-MAY-2022, THE PATIENT RECEIVE
     Route: 041
     Dates: start: 20140611

REACTIONS (10)
  - Pneumonia [Recovering/Resolving]
  - Blood iron decreased [Unknown]
  - Asthma [Unknown]
  - Sinus disorder [Unknown]
  - COVID-19 [Recovering/Resolving]
  - General physical health deterioration [Recovering/Resolving]
  - Productive cough [Unknown]
  - Hypersensitivity [Unknown]
  - Frequent bowel movements [Unknown]
  - Fatigue [Unknown]

NARRATIVE: CASE EVENT DATE: 20200101
